FAERS Safety Report 19805184 (Version 1)
Quarter: 2021Q3

REPORT INFORMATION
  Report Type: Report from Study
  Country: US (occurrence: US)
  Receive Date: 20210908
  Receipt Date: 20210908
  Transmission Date: 20211014
  Serious: Yes (Other)
  Sender: FDA-Public Use
  Company Number: US-SA-2021SA220736

PATIENT
  Age: 48 Year
  Sex: Female

DRUGS (1)
  1. AGALSIDASE BETA [Suspect]
     Active Substance: AGALSIDASE BETA
     Indication: FABRY^S DISEASE
     Dosage: 75 MG, QOW
     Route: 042
     Dates: start: 20210702

REACTIONS (7)
  - Pericardial effusion [Not Recovered/Not Resolved]
  - Cardiac flutter [Unknown]
  - Central venous catheterisation [Recovering/Resolving]
  - Headache [Unknown]
  - Procedural pain [Recovering/Resolving]
  - Fatigue [Unknown]
  - Fatigue [Recovering/Resolving]

NARRATIVE: CASE EVENT DATE: 202107
